FAERS Safety Report 9359058 (Version 1)
Quarter: 2013Q2

REPORT INFORMATION
  Report Type: Spontaneous
  Country: US (occurrence: US)
  Receive Date: 20130620
  Receipt Date: 20130620
  Transmission Date: 20140414
  Serious: Yes (Other)
  Sender: FDA-Public Use
  Company Number: US-BAXTER-2013BAX022802

PATIENT
  Age: 39 Year
  Sex: Male

DRUGS (7)
  1. GAMMAGARD LIQUID [Suspect]
     Indication: MYASTHENIA GRAVIS
     Route: 042
     Dates: start: 20130611, end: 20130611
  2. GAMMAGARD LIQUID [Suspect]
     Indication: OFF LABEL USE
     Dosage: DAY 5 OF 5 LOADING DOSE
     Route: 042
     Dates: start: 20130515, end: 20130515
  3. GAMMAGARD LIQUID [Suspect]
     Dosage: DAY 4 OF 5 LOADING DOSE
     Route: 042
     Dates: start: 20130514, end: 20130514
  4. GAMMAGARD LIQUID [Suspect]
     Dosage: DAY 2 OF 5 LOADING DOSE
     Route: 042
     Dates: start: 20130512, end: 20130512
  5. GAMMAGARD LIQUID [Suspect]
     Dosage: DAY 1 OF 5 LOADING DOSE
     Route: 042
     Dates: start: 20130511, end: 20130511
  6. MESTINON [Concomitant]
     Indication: MYASTHENIA GRAVIS
     Route: 048
  7. PREDNISONE [Concomitant]
     Indication: MYASTHENIA GRAVIS
     Route: 048
     Dates: start: 1998

REACTIONS (4)
  - Urticaria [Recovered/Resolved]
  - Local swelling [Recovered/Resolved]
  - Erythema [Recovered/Resolved]
  - Hypertension [Recovered/Resolved]
